FAERS Safety Report 9712845 (Version 1)
Quarter: 2013Q4

REPORT INFORMATION
  Report Type: Spontaneous
  Country: US (occurrence: US)
  Receive Date: 20131126
  Receipt Date: 20131126
  Transmission Date: 20140711
  Serious: No
  Sender: FDA-Public Use
  Company Number: US-BRISTOL-MYERS SQUIBB COMPANY-18931667

PATIENT
  Age: 67 Year
  Sex: Female
  Weight: 126.98 kg

DRUGS (6)
  1. BYDUREON [Suspect]
     Indication: TYPE 2 DIABETES MELLITUS
     Route: 058
     Dates: start: 20130211
  2. SIMVASTATIN [Concomitant]
  3. AVAPRO [Concomitant]
  4. GLIMEPIRIDE [Concomitant]
  5. METFORMIN [Concomitant]
  6. ACTOS [Concomitant]

REACTIONS (2)
  - Oral mucosal blistering [Unknown]
  - Hypoaesthesia oral [Unknown]
